FAERS Safety Report 25833987 (Version 1)
Quarter: 2025Q3

REPORT INFORMATION
  Report Type: Report from Study
  Country: US (occurrence: US)
  Receive Date: 20250923
  Receipt Date: 20250923
  Transmission Date: 20251020
  Serious: Yes (Death, Other)
  Sender: ACADIA PHARMACEUTICALS
  Company Number: US-ACADIA PHARMACEUTICALS INC.-ACA-2025-PIM-010474

PATIENT
  Age: 77 Year
  Sex: Male

DRUGS (12)
  1. NUPLAZID [Suspect]
     Active Substance: PIMAVANSERIN TARTRATE
     Indication: Psychotic disorder due to a general medical condition
     Dosage: 34 MILLIGRAM, QD
     Route: 048
  2. NUPLAZID [Suspect]
     Active Substance: PIMAVANSERIN TARTRATE
     Indication: Delusion
  3. RYTARY [Concomitant]
     Active Substance: CARBIDOPA\LEVODOPA
  4. PEPCID [Concomitant]
     Active Substance: FAMOTIDINE
  5. ASPIRIN [Concomitant]
     Active Substance: ASPIRIN
  6. SENNA S [Concomitant]
     Active Substance: DOCUSATE SODIUM\SENNOSIDES
  7. FIBER LAX [Concomitant]
     Active Substance: CALCIUM POLYCARBOPHIL
  8. VITAMIN D3 [Concomitant]
     Active Substance: CHOLECALCIFEROL
  9. ATORVASTATIN CALCIUM [Concomitant]
     Active Substance: ATORVASTATIN CALCIUM
  10. CLONAZEPAM [Concomitant]
     Active Substance: CLONAZEPAM
  11. SINEMET [Concomitant]
     Active Substance: CARBIDOPA\LEVODOPA
  12. VITAMIN B12 [Concomitant]
     Active Substance: CYANOCOBALAMIN

REACTIONS (2)
  - Death [Fatal]
  - Product use in unapproved indication [Recovered/Resolved]

NARRATIVE: CASE EVENT DATE: 20250901
